FAERS Safety Report 7591608-3 (Version None)
Quarter: 2011Q3

REPORT INFORMATION
  Report Type: 
  Country: None (occurrence: None)
  Receive Date: 20110706
  Receipt Date: 20110617
  Transmission Date: 20111222
  Serious: Yes (Other)
  Sender: FDA-Public Use
  Company Number: US-BAYER-201039815NA

PATIENT
  Age: 29 Year
  Sex: Female

DRUGS (5)
  1. DROSPIRENONE AND ETHINYL ESTRADIOL [Suspect]
     Indication: PRODUCT USED FOR UNKNOWN INDICATION
     Dosage: UNK UNK, QD
     Route: 048
     Dates: start: 20080101, end: 20090101
  2. PROMETHAZINE [Concomitant]
     Dosage: 25 MG, Q8HR
  3. ACETAMINOPHEN AND HYDROCODONE BITARTRATE [Concomitant]
     Dosage: 500 MG-5 MG 2 TA
     Route: 048
  4. ALBUTEROL SULFATE AUTOHALER [Concomitant]
     Dosage: 2 DF, PRN
  5. DICYCLOMINE [Concomitant]
     Dosage: 10 MG, TID
     Route: 048

REACTIONS (3)
  - GALLBLADDER DISORDER [None]
  - PAIN [None]
  - CHOLECYSTITIS [None]
